FAERS Safety Report 18169699 (Version 3)
Quarter: 2021Q1

REPORT INFORMATION
  Report Type: Spontaneous
  Country: US (occurrence: US)
  Receive Date: 20200819
  Receipt Date: 20210101
  Transmission Date: 20210419
  Serious: No
  Sender: FDA-Public Use
  Company Number: US-GLAXOSMITHKLINE-US2020AMR159314

PATIENT
  Sex: Female

DRUGS (3)
  1. ZEJULA [Suspect]
     Active Substance: NIRAPARIB
     Dosage: 100 MG
  2. ZEJULA [Suspect]
     Active Substance: NIRAPARIB
     Indication: OVARIAN CANCER
     Dosage: 100 MG
     Dates: start: 20200511
  3. ZEJULA [Suspect]
     Active Substance: NIRAPARIB
     Dosage: 3 DF, QD (100MG ORAL CAPSULE)
     Route: 048
     Dates: end: 20201119

REACTIONS (7)
  - Drug ineffective [Unknown]
  - Product dose omission issue [Unknown]
  - Fatigue [Unknown]
  - Adverse drug reaction [Unknown]
  - Blood pressure increased [Unknown]
  - Gastroenteritis viral [Unknown]
  - Constipation [Unknown]
